FAERS Safety Report 4558442-X (Version None)
Quarter: 2005Q1

REPORT INFORMATION
  Report Type: 
  Country: None (occurrence: None)
  Receive Date: 20050103
  Receipt Date: 20041006
  Transmission Date: 20050727
  Serious: Yes (Other)
  Sender: FDA-Public Use
  Company Number: 2004UW20944

PATIENT
  Age: 70 Year
  Sex: Female
  Weight: 108.86 kg

DRUGS (5)
  1. CRESTOR [Suspect]
     Indication: BLOOD CHOLESTEROL INCREASED
     Dosage: 10 MG QD PO
     Route: 048
     Dates: start: 20040901
  2. PROTONIX [Concomitant]
  3. PAXIL [Concomitant]
  4. TORSEMIDE [Concomitant]
  5. COREG [Concomitant]

REACTIONS (4)
  - DIFFICULTY IN WALKING [None]
  - MUSCLE SPASMS [None]
  - MUSCULOSKELETAL STIFFNESS [None]
  - SENSATION OF HEAVINESS [None]
